FAERS Safety Report 6547897-7 (Version None)
Quarter: 2010Q1

REPORT INFORMATION
  Report Type: 
  Country: None (occurrence: None)
  Receive Date: 20100124
  Receipt Date: 20091112
  Transmission Date: 20100710
  Serious: No
  Sender: FDA-Public Use
  Company Number: US-ALEXION-A200900967

PATIENT

DRUGS (8)
  1. SOLIRIS [Suspect]
     Indication: PAROXYSMAL NOCTURNAL HAEMOGLOBINURIA
     Dosage: 600 MG, QWK
     Route: 042
     Dates: start: 20080508, end: 20080529
  2. SOLIRIS [Suspect]
     Dosage: 900 MG, Q2WK
     Route: 042
     Dates: start: 20080605
  3. VITAMIN A [Concomitant]
     Dosage: 50000 IU, WEEKLY
     Route: 048
  4. VITAMIN B12                        /00056201/ [Concomitant]
     Dosage: 1000 UG, QD
     Route: 048
  5. FOLIC ACID [Concomitant]
     Dosage: 1 MG, QD
     Route: 048
  6. MULTIVITAMIN                       /00831701/ [Concomitant]
     Dosage: 1 TABLET, QD
     Route: 048
  7. MOTRIN [Concomitant]
     Dosage: UNK
     Route: 048
  8. COENZYME Q10                       /00517201/ [Concomitant]
     Dosage: UNK
     Route: 048

REACTIONS (1)
  - TOOTH FRACTURE [None]
